FAERS Safety Report 15106632 (Version 2)
Quarter: 2018Q3

REPORT INFORMATION
  Report Type: Spontaneous
  Country: US (occurrence: US)
  Receive Date: 20180704
  Receipt Date: 20180724
  Transmission Date: 20181010
  Serious: No
  Sender: FDA-Public Use
  Company Number: US-SA-2018SA175186

PATIENT
  Age: 74 Year
  Sex: Female
  Weight: 54 kg

DRUGS (21)
  1. DUPIXENT [Suspect]
     Active Substance: DUPILUMAB
     Indication: DERMATITIS ATOPIC
     Dosage: 300 MG, QOW
     Dates: start: 201805
  2. CLOPIDOGREL [Concomitant]
     Active Substance: CLOPIDOGREL BISULFATE
  3. LOVASTATIN. [Concomitant]
     Active Substance: LOVASTATIN
  4. JARDIANCE DUO [Concomitant]
     Active Substance: EMPAGLIFLOZIN\METFORMIN HYDROCHLORIDE
  5. GOLD BOND ORIGINAL STRENGTH POWDER [Concomitant]
     Active Substance: MENTHOL\ZINC OXIDE
  6. CARVEDILOL. [Concomitant]
     Active Substance: CARVEDILOL
  7. MULTIVITAMINS [VITAMINS NOS] [Concomitant]
  8. MAGNESIUM [Concomitant]
     Active Substance: MAGNESIUM
  9. TURMERIC [CURCUMA LONGA] [Concomitant]
  10. HUMULIN NOS [Concomitant]
     Active Substance: INSULIN HUMAN
  11. HYLATOPICPLUS [Concomitant]
     Active Substance: EMOLLIENTS
  12. CLOBETASOL PROPIONATE. [Concomitant]
     Active Substance: CLOBETASOL PROPIONATE
  13. VITAMIN C [ASCORBIC ACID] [Concomitant]
  14. ESCITALOPRAM OXALATE. [Concomitant]
     Active Substance: ESCITALOPRAM OXALATE
  15. POTASSIUM [Concomitant]
     Active Substance: POTASSIUM
  16. ALLOPURINOL. [Concomitant]
     Active Substance: ALLOPURINOL
  17. BENAZEPRIL [BENAZEPRIL HYDROCHLORIDE] [Concomitant]
  18. METFORMIN HYDROCHLORIDE. [Concomitant]
     Active Substance: METFORMIN HYDROCHLORIDE
  19. VITAMIN D3 [Concomitant]
     Active Substance: CHOLECALCIFEROL
  20. AMLODIPINE BESYLATE. [Concomitant]
     Active Substance: AMLODIPINE BESYLATE
  21. HYDRALAZINE HYDROCHLORIDE. [Concomitant]
     Active Substance: HYDRALAZINE HYDROCHLORIDE

REACTIONS (3)
  - Dry skin [Unknown]
  - Drug dose omission [Unknown]
  - Skin exfoliation [Unknown]
